APPROVED DRUG PRODUCT: OXYTOCIN
Active Ingredient: OXYTOCIN
Strength: 10USP UNITS/ML (10USP UNITS/ML)
Dosage Form/Route: INJECTABLE;INJECTION
Application: A200219 | Product #001 | TE Code: AP
Applicant: HIKMA FARMACEUTICA PORTUGAL SA
Approved: Feb 13, 2013 | RLD: No | RS: No | Type: RX